FAERS Safety Report 21642034 (Version 1)
Quarter: 2022Q4

REPORT INFORMATION
  Report Type: Spontaneous
  Country: US (occurrence: US)
  Receive Date: 20221125
  Receipt Date: 20221125
  Transmission Date: 20230112
  Serious: No
  Sender: FDA-Public Use
  Company Number: US-GLAXOSMITHKLINE-US2022AMR174766

PATIENT
  Sex: Female

DRUGS (2)
  1. ZEJULA [Suspect]
     Active Substance: NIRAPARIB
     Indication: Lip and/or oral cavity cancer
     Dosage: 200 MG, QD
     Dates: end: 20221114
  2. HUMAN RED BLOOD CELL [Concomitant]
     Active Substance: HUMAN RED BLOOD CELL
     Indication: Blood test abnormal
     Dosage: UNK
     Dates: start: 20221114

REACTIONS (7)
  - Illness [Unknown]
  - Full blood count abnormal [Unknown]
  - Pain [Unknown]
  - Gait disturbance [Unknown]
  - Dehydration [Unknown]
  - Dysphagia [Unknown]
  - Off label use [Unknown]
